FAERS Safety Report 22208199 (Version 1)
Quarter: 2023Q2

REPORT INFORMATION
  Report Type: Spontaneous
  Country: US (occurrence: None)
  Receive Date: 20230412
  Receipt Date: 20230412
  Transmission Date: 20230721
  Serious: Yes (Other)
  Sender: FDA-Public Use
  Company Number: None

PATIENT
  Age: 52 Year
  Sex: Male
  Weight: 113.4 kg

DRUGS (1)
  1. TADALAFIL [Suspect]
     Active Substance: TADALAFIL
     Dosage: FREQUENCY : DAILY;?
     Route: 048

REACTIONS (6)
  - Back pain [None]
  - Headache [None]
  - Dyspepsia [None]
  - Nausea [None]
  - Dizziness [None]
  - Sneezing [None]

NARRATIVE: CASE EVENT DATE: 20230201
